FAERS Safety Report 13167480 (Version 2)
Quarter: 2017Q1

REPORT INFORMATION
  Report Type: Spontaneous
  Country: US (occurrence: US)
  Receive Date: 20170131
  Receipt Date: 20170306
  Transmission Date: 20170428
  Serious: Yes (Death, Other)
  Sender: FDA-Public Use
  Company Number: US-PFIZER INC-2017036974

PATIENT
  Age: 65 Year
  Sex: Male
  Weight: 98.87 kg

DRUGS (1)
  1. CHANTIX [Suspect]
     Active Substance: VARENICLINE TARTRATE
     Indication: SMOKING CESSATION THERAPY
     Dosage: 1 MG, 2X/DAY
     Route: 048
     Dates: start: 201612

REACTIONS (2)
  - Nightmare [Unknown]
  - Completed suicide [Fatal]

NARRATIVE: CASE EVENT DATE: 20170121
